FAERS Safety Report 7756673-9 (Version None)
Quarter: 2011Q3

REPORT INFORMATION
  Report Type: 
  Country: None (occurrence: None)
  Receive Date: 20110831
  Receipt Date: 20110819
  Transmission Date: 20111222
  Serious: Yes (Hospitalization)
  Sender: FDA-Public Use
  Company Number: AECAN201100167

PATIENT
  Age: 88 Year
  Sex: Male
  Weight: 67 kg

DRUGS (13)
  1. IGIVNEX [Suspect]
     Indication: PEMPHIGOID
     Dosage: 40 GM;QD;IV
     Route: 042
     Dates: start: 20110522, end: 20110603
  2. CALCIUM W/VITAMIN D NOS [Concomitant]
  3. PREDNISONE [Concomitant]
  4. MEXILETINE HYDROCHLORIDE [Concomitant]
  5. LYRICA [Concomitant]
  6. IGIVNEX [Suspect]
  7. METHYLPHENIDATE [Concomitant]
  8. CELLCEPT [Suspect]
     Indication: PRODUCT USED FOR UNKNOWN INDICATION
     Dates: end: 20110607
  9. DOCUSATE SODIUM [Concomitant]
  10. SENNOSIDES A+B [Concomitant]
  11. METADOL [Concomitant]
  12. ACETAMINOPHEN [Concomitant]
  13. LACTULOSE [Concomitant]

REACTIONS (4)
  - DEEP VEIN THROMBOSIS [None]
  - HAEMOLYSIS [None]
  - SKIN LESION [None]
  - COOMBS DIRECT TEST POSITIVE [None]
